FAERS Safety Report 23407740 (Version 1)
Quarter: 2024Q1

REPORT INFORMATION
  Report Type: Spontaneous
  Country: US (occurrence: US)
  Receive Date: 20240117
  Receipt Date: 20240117
  Transmission Date: 20240410
  Serious: Yes (Death, Other)
  Sender: FDA-Public Use
  Company Number: US-ADVANZ PHARMA-202312012289

PATIENT

DRUGS (6)
  1. DIGOXIN [Suspect]
     Active Substance: DIGOXIN
     Dosage: UNK (INGESTION)
     Route: 048
  2. DILTIAZEM [Suspect]
     Active Substance: DILTIAZEM
     Dosage: UNK (INGESTION)
     Route: 048
  3. FUROSEMIDE [Suspect]
     Active Substance: FUROSEMIDE
     Dosage: UNK (INGESTION)
     Route: 048
  4. APIXABAN [Suspect]
     Active Substance: APIXABAN
     Dosage: UNK (INGESTION)
     Route: 048
  5. METOLAZONE [Suspect]
     Active Substance: METOLAZONE
     Dosage: UNK (INGESTION)
     Route: 048
  6. POTASSIUM [Suspect]
     Active Substance: POTASSIUM
     Dosage: UNK (INGESTION)
     Route: 048

REACTIONS (1)
  - Death [Fatal]
